FAERS Safety Report 6195413-4 (Version None)
Quarter: 2009Q2

REPORT INFORMATION
  Report Type: 
  Country: None (occurrence: None)
  Receive Date: 20090515
  Receipt Date: 20090504
  Transmission Date: 20091009
  Serious: Yes (Hospitalization)
  Sender: FDA-Public Use
  Company Number: 2009AL002834

PATIENT
  Age: 59 Year
  Sex: Female

DRUGS (21)
  1. DIGOXIN [Suspect]
     Dosage: 0.25MG, DAILY, PO; 0.125MG, QOD, PO
     Route: 048
     Dates: start: 20030127, end: 20060604
  2. DIGOXIN [Suspect]
     Dosage: 0.25MG, DAILY, PO; 0.125MG, QOD, PO
     Route: 048
     Dates: start: 20060601
  3. GLIPIZIDE [Concomitant]
  4. METFORMIN HCL [Concomitant]
  5. ZYRTEC [Concomitant]
  6. CIPROFLOXCIN [Concomitant]
  7. ZOCOR [Concomitant]
  8. PLAVIX [Concomitant]
  9. HUMALOG [Concomitant]
  10. DETROL [Concomitant]
  11. LISINOPRIL [Concomitant]
  12. FUROSEMIDE [Concomitant]
  13. AVAPRO [Concomitant]
  14. NOVALOG [Concomitant]
  15. ISOSRBIDE [Concomitant]
  16. CLOPIDOGREL [Concomitant]
  17. DICYCLOMINE [Concomitant]
  18. OMERPRAZOLE [Concomitant]
  19. IMDUR [Concomitant]
  20. KLONOPIN [Concomitant]
  21. LANTUS [Concomitant]

REACTIONS (16)
  - ANXIETY [None]
  - BLOOD GLUCOSE INCREASED [None]
  - CHEST PAIN [None]
  - DEPRESSION [None]
  - DIZZINESS [None]
  - FALL [None]
  - FEAR [None]
  - HEADACHE [None]
  - INJURY [None]
  - JOINT INJURY [None]
  - LIMB INJURY [None]
  - NERVOUSNESS [None]
  - PAIN [None]
  - RENAL DISORDER [None]
  - THERAPEUTIC AGENT TOXICITY [None]
  - VISION BLURRED [None]
